FAERS Safety Report 7880700-1 (Version None)
Quarter: 2011Q4

REPORT INFORMATION
  Report Type: 
  Country: None (occurrence: None)
  Receive Date: 20111101
  Receipt Date: 20111027
  Transmission Date: 20120403
  Serious: No
  Sender: FDA-Public Use
  Company Number: US-ELI_LILLY_AND_COMPANY-US201111000082

PATIENT
  Sex: Female

DRUGS (24)
  1. PREDNISONE [Concomitant]
  2. TYLENOL                                 /SCH/ [Concomitant]
  3. ASPIRIN [Concomitant]
  4. DUONEB [Concomitant]
  5. VALTREX [Concomitant]
  6. DEXLANSOPRAZOLE [Concomitant]
  7. METHOTREXATE [Concomitant]
  8. WELCHOL [Concomitant]
  9. FUROSEMIDE [Concomitant]
  10. HYDROXIZINE [Concomitant]
  11. CALCIUM CARBONATE [Concomitant]
  12. COZAAR [Concomitant]
  13. KLOR-CON [Concomitant]
  14. CALCIUM [Concomitant]
  15. METOPROLOL TARTRATE [Concomitant]
  16. HYOSCYAMINE [Concomitant]
  17. ADCIRCA [Suspect]
     Indication: PULMONARY HYPERTENSION
     Dosage: 20 MG, UNK
  18. LOMOTIL [Concomitant]
  19. CRESTOR [Concomitant]
  20. ALENDRONATE SODIUM [Concomitant]
  21. IRON [Concomitant]
  22. FOLIC ACID [Concomitant]
  23. NEUROTIN                           /00949202/ [Concomitant]
  24. COMBIVENT [Concomitant]

REACTIONS (2)
  - VISION BLURRED [None]
  - OCULAR HYPERAEMIA [None]
